FAERS Safety Report 8255826-3 (Version None)
Quarter: 2012Q2

REPORT INFORMATION
  Report Type: 
  Country: None (occurrence: None)
  Receive Date: 20120403
  Receipt Date: 20120321
  Transmission Date: 20120825
  Serious: Yes (Other)
  Sender: FDA-Public Use
  Company Number: IE-FRI-1000029458

PATIENT
  Age: 28 Year
  Sex: Male

DRUGS (2)
  1. RISPERIDONE [Suspect]
  2. ESCITALOPRAM [Suspect]

REACTIONS (3)
  - GALACTORRHOEA [None]
  - HEADACHE [None]
  - BLOOD PROLACTIN INCREASED [None]
